FAERS Safety Report 17170570 (Version 1)
Quarter: 2019Q4

REPORT INFORMATION
  Report Type: Spontaneous
  Country: FR (occurrence: FR)
  Receive Date: 20191218
  Receipt Date: 20191218
  Transmission Date: 20200122
  Serious: Yes (Life-Threatening)
  Sender: FDA-Public Use
  Company Number: FR-MYLANLABS-2019M1123389

PATIENT
  Age: 49 Year
  Sex: Female
  Weight: 83 kg

DRUGS (4)
  1. SUFENTANIL MYLAN 50 MIKROGRAMM/ML INJEKTIONSL?SUNG [Suspect]
     Active Substance: SUFENTANIL
     Indication: ANAESTHESIA
     Dosage: 20 MICROGRAM, TOTAL
     Route: 041
     Dates: start: 20190725, end: 20190725
  2. SUXAMETHONIUM [Suspect]
     Active Substance: SUCCINYLCHOLINE
     Indication: ANAESTHESIA
     Dosage: 80 MILLIGRAM, TOTAL
     Route: 041
     Dates: start: 20190725, end: 20190725
  3. DEXAMETHASONE MYLAN [Suspect]
     Active Substance: DEXAMETHASONE
     Indication: PROPHYLAXIS
     Dosage: 8 MILLIGRAM, TOTAL
     Route: 041
     Dates: start: 20190725, end: 20190725
  4. PROPOFOL LIPURO [Suspect]
     Active Substance: PROPOFOL
     Indication: ANAESTHESIA
     Dosage: 200 MILLIGRAM, TOTAL
     Route: 041
     Dates: start: 20190725, end: 20190725

REACTIONS (1)
  - Anaphylactic shock [Recovered/Resolved]

NARRATIVE: CASE EVENT DATE: 20190725
